FAERS Safety Report 9336517 (Version 1)
Quarter: 2013Q2

REPORT INFORMATION
  Report Type: Report from Study
  Country: AR (occurrence: AR)
  Receive Date: 20130607
  Receipt Date: 20130607
  Transmission Date: 20140414
  Serious: Yes (Other)
  Sender: FDA-Public Use
  Company Number: AR-ROCHE-1232213

PATIENT
  Age: 81 Year
  Sex: Female

DRUGS (3)
  1. LUCENTIS [Suspect]
     Indication: MACULOPATHY
     Route: 050
     Dates: start: 201101
  2. LUCENTIS [Suspect]
     Route: 050
     Dates: start: 201102
  3. LUCENTIS [Suspect]
     Route: 050
     Dates: start: 201303

REACTIONS (8)
  - Scotoma [Recovering/Resolving]
  - Ocular neoplasm [Recovering/Resolving]
  - Dysstasia [Recovering/Resolving]
  - Visual acuity reduced [Recovering/Resolving]
  - Vision blurred [Recovering/Resolving]
  - Visual impairment [Recovering/Resolving]
  - No therapeutic response [Recovering/Resolving]
  - Urinary tract infection [Unknown]
